FAERS Safety Report 23998119 (Version 1)
Quarter: 2024Q2

REPORT INFORMATION
  Report Type: Spontaneous
  Country: BR (occurrence: BR)
  Receive Date: 20240621
  Receipt Date: 20240621
  Transmission Date: 20240717
  Serious: Yes (Hospitalization, Other)
  Sender: FDA-Public Use
  Company Number: BR-BAYER-2024A087368

PATIENT
  Age: 38 Year
  Sex: Female

DRUGS (14)
  1. XARELTO [Suspect]
     Active Substance: RIVAROXABAN
     Indication: Thrombosis prophylaxis
     Route: 048
     Dates: start: 2014
  2. ADEMPAS [Suspect]
     Active Substance: RIOCIGUAT
     Indication: Pulmonary hypertension
     Route: 065
  3. SILDENAFIL [Suspect]
     Active Substance: SILDENAFIL
     Indication: Pulmonary hypertension
     Dosage: 20 MG, Q8HR
     Route: 065
     Dates: start: 2014
  4. BOSENTAN [Concomitant]
     Active Substance: BOSENTAN
     Indication: Pulmonary hypertension
     Dosage: 125 MG, QD
     Dates: start: 2014, end: 2022
  5. AMBRISENTAN [Concomitant]
     Active Substance: AMBRISENTAN
     Indication: Pulmonary hypertension
     Dosage: 10 MG, QD
     Dates: start: 2022
  6. SELEXIPAG [Concomitant]
     Active Substance: SELEXIPAG
     Indication: Pulmonary hypertension
     Dosage: 800 MG Q12H
     Dates: start: 202402
  7. WARFARIN SODIUM [Concomitant]
     Active Substance: WARFARIN SODIUM
     Indication: Thrombosis prophylaxis
     Dates: start: 2014, end: 2014
  8. ENOXAPARIN SODIUM [Concomitant]
     Active Substance: ENOXAPARIN SODIUM
     Indication: Thrombosis prophylaxis
     Dosage: USES ONLY WHEN HOSPITALISED. USE INSTEAD OF XARELTO
  9. ENOXAPARIN [Concomitant]
     Active Substance: ENOXAPARIN
     Indication: Thrombosis prophylaxis
     Dosage: USES ONLY WHEN HOSPITALISED. USE INSTEAD OF XARELTO
  10. FUROSEMIDE [Concomitant]
     Active Substance: FUROSEMIDE
     Indication: Diuretic therapy
     Dosage: 2 TABLETS/DAY
     Dates: start: 2019
  11. SPIRONOLACTONE [Concomitant]
     Active Substance: SPIRONOLACTONE
     Dosage: 1 TABLET OF 100MG/DAY
     Dates: start: 2019
  12. SIMVASTATIN [Concomitant]
     Active Substance: SIMVASTATIN
     Indication: Hypercholesterolaemia
     Dosage: 1 TABLET/DAY
     Dates: start: 202310
  13. TOPIRAMATE [Concomitant]
     Active Substance: TOPIRAMATE
     Indication: Optic nerve disorder
     Dosage: 100 MG, QD
     Dates: start: 2020
  14. OMEPRAZOLE [Concomitant]
     Active Substance: DONEPEZIL HYDROCHLORIDE\OMEPRAZOLE\OMEPRAZOLE MAGNESIUM
     Dosage: 40 MG, QD
     Dates: start: 2014

REACTIONS (26)
  - Product prescribing issue [Unknown]
  - Loss of consciousness [Unknown]
  - Optic nerve disorder [Not Recovered/Not Resolved]
  - Tinnitus [Unknown]
  - Dyspnoea [Unknown]
  - Dysstasia [Unknown]
  - Muscle rigidity [Unknown]
  - Ocular icterus [Unknown]
  - Memory impairment [Unknown]
  - Fatigue [Unknown]
  - Dyspnoea [Unknown]
  - Feeling hot [Unknown]
  - Cardiac valve disease [Unknown]
  - Dizziness [Unknown]
  - Fatigue [Unknown]
  - Seizure like phenomena [Unknown]
  - Syncope [Unknown]
  - Syncope [Unknown]
  - Syncope [Unknown]
  - Syncope [Unknown]
  - Syncope [Unknown]
  - Brain natriuretic peptide increased [Unknown]
  - Myocardial ischaemia [Unknown]
  - Haemorrhage [Unknown]
  - Heavy menstrual bleeding [Unknown]
  - Hysterectomy [Unknown]

NARRATIVE: CASE EVENT DATE: 20150101
